FAERS Safety Report 16698642 (Version 1)
Quarter: 2019Q3

REPORT INFORMATION
  Report Type: Spontaneous
  Country: US (occurrence: US)
  Receive Date: 20190813
  Receipt Date: 20190813
  Transmission Date: 20191004
  Serious: Yes (Other)
  Sender: FDA-Public Use
  Company Number: US-BAUSCH-BL-2019-022206

PATIENT
  Sex: Female

DRUGS (1)
  1. GENERIC PRIMIDONE [Suspect]
     Active Substance: PRIMIDONE
     Indication: PRODUCT USED FOR UNKNOWN INDICATION
     Route: 065

REACTIONS (6)
  - Tremor [Unknown]
  - Headache [Not Recovered/Not Resolved]
  - Mental impairment [Unknown]
  - Fall [Unknown]
  - Blood pressure increased [Not Recovered/Not Resolved]
  - Feeling drunk [Unknown]
